FAERS Safety Report 22273774 (Version 1)
Quarter: 2023Q2

REPORT INFORMATION
  Report Type: Spontaneous
  Country: CN (occurrence: CN)
  Receive Date: 20230502
  Receipt Date: 20230502
  Transmission Date: 20230722
  Serious: Yes (Other)
  Sender: FDA-Public Use
  Company Number: CN-ABBOTT-2023A-1363049

PATIENT
  Age: 47 Year
  Sex: Male
  Weight: 68 kg

DRUGS (5)
  1. FENOFIBRATE [Suspect]
     Active Substance: FENOFIBRATE
     Indication: Hyperlipidaemia
     Dosage: UNIT DOSE: 0.2 G, DAILY DOSE: 0.2 G
     Route: 048
     Dates: start: 20200705, end: 20200713
  2. JANUVIA [Concomitant]
     Active Substance: SITAGLIPTIN PHOSPHATE
     Indication: Type 2 diabetes mellitus
     Dosage: UNIT DOSE: 100 MG, DAILY DOSE: 100 MG
     Route: 048
     Dates: start: 20200703, end: 20200713
  3. GLUCOBAY [Suspect]
     Active Substance: ACARBOSE
     Indication: Type 2 diabetes mellitus
     Dosage: UNIT DOSE: 100 MG, DAILY DOSE: 200 MG
     Route: 048
     Dates: start: 20200709, end: 20200713
  4. SODIUM CHLORIDE [Concomitant]
     Active Substance: SODIUM CHLORIDE
     Indication: Vehicle solution use
     Dosage: UNIT DOSE: 100 ML, DAILY DOSE: 100 ML
     Route: 041
     Dates: start: 20200708, end: 20200713
  5. BATROXOBIN [Concomitant]
     Active Substance: BATROXOBIN
     Indication: Type 2 diabetes mellitus
     Dosage: UNIT DOSE: 5 UNIT, DAILY DOSE: 5 UNIT
     Route: 041
     Dates: start: 20200708, end: 20200713

REACTIONS (1)
  - Hepatic function abnormal [Unknown]

NARRATIVE: CASE EVENT DATE: 20200713
